FAERS Safety Report 11205799 (Version 2)
Quarter: 2015Q3

REPORT INFORMATION
  Report Type: Report from Study
  Country: US (occurrence: US)
  Receive Date: 20150622
  Receipt Date: 20150710
  Transmission Date: 20151125
  Serious: Yes (Other)
  Sender: FDA-Public Use
  Company Number: US-BAYER-2015-258746

PATIENT
  Age: 85 Year
  Sex: Female

DRUGS (3)
  1. STIVARGA [Suspect]
     Active Substance: REGORAFENIB
     Indication: LUNG NEOPLASM MALIGNANT
     Dosage: 120 MG, 3 TABLETS EVERYDAY FOR 3 WEEKS THEN 1 WEEK OFF
     Route: 048
     Dates: start: 20150505
  2. STIVARGA [Suspect]
     Active Substance: REGORAFENIB
     Indication: LUNG NEOPLASM MALIGNANT
     Dosage: 120 MG, 3 TABLETS EVERYDAY FOR 3 WEEKS THEN 1 WEEK OFF
     Route: 048
     Dates: start: 20150505
  3. STIVARGA [Suspect]
     Active Substance: REGORAFENIB
     Indication: LUNG NEOPLASM MALIGNANT
     Dosage: 120 MG, 3 TABLETS EVERYDAY FOR 3 WEEKS THEN 1 WEEK OFF
     Route: 048
     Dates: start: 20150501

REACTIONS (7)
  - Fatigue [None]
  - Pain in extremity [Recovered/Resolved]
  - Abdominal pain [Recovered/Resolved]
  - Off label use [None]
  - Constipation [Recovered/Resolved]
  - Constipation [Not Recovered/Not Resolved]
  - Vomiting [Recovered/Resolved]

NARRATIVE: CASE EVENT DATE: 201505
